FAERS Safety Report 8084916-3 (Version None)
Quarter: 2012Q1

REPORT INFORMATION
  Report Type: 
  Country: None (occurrence: None)
  Receive Date: 20120128
  Receipt Date: 20110328
  Transmission Date: 20120608
  Serious: No
  Sender: FDA-Public Use
  Company Number: US-ABBOTT-11P-163-0714769-00

PATIENT
  Age: 57 Year
  Sex: Female

DRUGS (12)
  1. HUMIRA [Suspect]
     Indication: RHEUMATOID ARTHRITIS
     Dates: start: 20100318
  2. NASONEX [Concomitant]
     Indication: HYPERSENSITIVITY
     Dosage: 1 SPRAY IN AM AND 1 SPRAY IN PM
     Route: 045
  3. ADVAIR DISKUS 100/50 [Concomitant]
     Indication: ASTHMA
     Dosage: 250/50, 1 IN AM AND 1 IN PM
     Route: 055
  4. FISH OIL [Concomitant]
     Indication: PRODUCT USED FOR UNKNOWN INDICATION
  5. PROTONIX [Concomitant]
     Indication: GASTROOESOPHAGEAL REFLUX DISEASE
     Dosage: 1 TAB EVERY MORNING
  6. ZITHROMAX [Concomitant]
     Indication: SINUSITIS
  7. CALTRATE [Concomitant]
     Indication: PRODUCT USED FOR UNKNOWN INDICATION
  8. LOVAZA [Concomitant]
     Indication: PRODUCT USED FOR UNKNOWN INDICATION
  9. ALBUTEROL [Concomitant]
     Indication: ASTHMA
     Dosage: 1 PUFF IN AM AND 1 PUFF IN PM AS NEEDED
  10. FOLIC ACID [Concomitant]
     Indication: PRODUCT USED FOR UNKNOWN INDICATION
  11. METHOTREXATE [Concomitant]
     Indication: RHEUMATOID ARTHRITIS
     Dosage: 6 TABS WEEKLY
  12. LEVOTHRYOXIN [Concomitant]
     Indication: HYPOTHYROIDISM

REACTIONS (2)
  - HERPES ZOSTER [None]
  - SINUSITIS [None]
